FAERS Safety Report 5290798-5 (Version None)
Quarter: 2007Q2

REPORT INFORMATION
  Report Type: 
  Country: None (occurrence: None)
  Receive Date: 20070409
  Receipt Date: 20070326
  Transmission Date: 20071010
  Serious: Yes (Hospitalization)
  Sender: FDA-Public Use
  Company Number: ES-PFIZER INC-2007024114

PATIENT
  Sex: Male

DRUGS (6)
  1. NEURONTIN [Suspect]
     Indication: NEURALGIA
     Dosage: DAILY DOSE:3600MG
     Route: 048
  2. FENTANYL [Concomitant]
     Route: 062
  3. IBUPROFEN [Concomitant]
     Route: 048
  4. PARACETAMOL [Concomitant]
  5. DICLOFENAC SODIUM [Concomitant]
  6. LIDOCAINE [Concomitant]

REACTIONS (5)
  - APHASIA [None]
  - COORDINATION ABNORMAL [None]
  - DIPLOPIA [None]
  - DRUG WITHDRAWAL SYNDROME [None]
  - INTERVERTEBRAL DISC COMPRESSION [None]
